FAERS Safety Report 9405382 (Version 1)
Quarter: 2013Q3

REPORT INFORMATION
  Report Type: Spontaneous
  Country: JP (occurrence: JP)
  Receive Date: 20130717
  Receipt Date: 20130717
  Transmission Date: 20140515
  Serious: Yes (Other)
  Sender: FDA-Public Use
  Company Number: JP-JNJFOC-20130706675

PATIENT
  Sex: 0

DRUGS (3)
  1. INFLIXIMAB, RECOMBINANT [Suspect]
     Indication: RHEUMATOID ARTHRITIS
     Dosage: INDUCTION DOSES AT 0, 2, 6 WEEKS
     Route: 042
  2. METHOTREXATE [Concomitant]
     Route: 065
  3. PREDNISOLONE [Concomitant]
     Route: 065

REACTIONS (5)
  - Toxic skin eruption [Unknown]
  - Pneumonia bacterial [Unknown]
  - Pneumocystis jirovecii pneumonia [Unknown]
  - Infusion related reaction [Unknown]
  - Drug ineffective [Unknown]
